FAERS Safety Report 13255777 (Version 2)
Quarter: 2017Q1

REPORT INFORMATION
  Report Type: Spontaneous
  Country: US (occurrence: US)
  Receive Date: 20170221
  Receipt Date: 20170320
  Transmission Date: 20170428
  Serious: No
  Sender: FDA-Public Use
  Company Number: US-VERTEX PHARMACEUTICALS-2017-000908

PATIENT
  Sex: Female

DRUGS (6)
  1. PERTZYE [Concomitant]
     Active Substance: PANCRELIPASE AMYLASE\PANCRELIPASE LIPASE\PANCRELIPASE PROTEASE
  2. ORKAMBI [Suspect]
     Active Substance: IVACAFTOR\LUMACAFTOR
     Indication: CYSTIC FIBROSIS
     Dosage: 200/ 250 MG, BID
     Route: 048
     Dates: start: 20170111, end: 2017
  3. SODIUM CHLORIDE. [Concomitant]
     Active Substance: SODIUM CHLORIDE
  4. URSODIOL. [Concomitant]
     Active Substance: URSODIOL
  5. PULMOZYME [Concomitant]
     Active Substance: DORNASE ALFA
  6. DEKA [Concomitant]

REACTIONS (1)
  - Chest pain [Unknown]
